FAERS Safety Report 13813316 (Version 5)
Quarter: 2017Q4

REPORT INFORMATION
  Report Type: Spontaneous
  Country: JP (occurrence: JP)
  Receive Date: 20170729
  Receipt Date: 20171010
  Transmission Date: 20180320
  Serious: No
  Sender: FDA-Public Use
  Company Number: JP-AMGEN-JPNSP2017095552

PATIENT
  Age: 68 Year
  Sex: Female
  Weight: 54.5 kg

DRUGS (7)
  1. HACHIMIJIOGANRYO [Concomitant]
     Indication: HYPOAESTHESIA
     Dosage: 3 UNK, FREQUENCY 3
  2. VOGLIBOSE [Concomitant]
     Active Substance: VOGLIBOSE
     Indication: DIABETES MELLITUS
     Dosage: 0.3 UNK, FREQUENCY 2
  3. REPATHA [Suspect]
     Active Substance: EVOLOCUMAB
     Indication: HYPERCHOLESTEROLAEMIA
     Dosage: 140 MG, UNK
     Route: 058
     Dates: start: 20170418, end: 20170509
  4. JANUVIA [Concomitant]
     Active Substance: SITAGLIPTIN PHOSPHATE
     Indication: DIABETES MELLITUS
     Dosage: 50 UNK, FREQUENCY 1
  5. CILOSTAZOL. [Concomitant]
     Active Substance: CILOSTAZOL
     Indication: SPINAL COLUMN STENOSIS
     Dosage: 100 UNK, FREQUENCY 1
  6. CILOSTAZOL. [Concomitant]
     Active Substance: CILOSTAZOL
     Indication: CEREBELLAR INFARCTION
  7. EPADEL [Concomitant]
     Active Substance: ICOSAPENT
     Indication: HYPERCHOLESTEROLAEMIA
     Dosage: 900 UNK, FREQUENCY 2

REACTIONS (1)
  - Blood creatine phosphokinase increased [Not Recovered/Not Resolved]

NARRATIVE: CASE EVENT DATE: 20170523
